FAERS Safety Report 6059359-4 (Version None)
Quarter: 2009Q1

REPORT INFORMATION
  Report Type: 
  Country: None (occurrence: None)
  Receive Date: 20090128
  Receipt Date: 20090119
  Transmission Date: 20090719
  Serious: Yes (Hospitalization)
  Sender: FDA-Public Use
  Company Number: JPI-P-005926

PATIENT
  Age: 57 Year
  Sex: Female
  Weight: 66.6788 kg

DRUGS (20)
  1. XYREM [Suspect]
     Indication: RAPID EYE MOVEMENTS SLEEP ABNORMAL
     Dosage: SEE IMAGE, ORAL
     Route: 048
     Dates: start: 20070101, end: 20080701
  2. XYREM [Suspect]
     Indication: RAPID EYE MOVEMENTS SLEEP ABNORMAL
     Dosage: SEE IMAGE, ORAL
     Route: 048
     Dates: start: 20080701, end: 20081101
  3. XYREM [Suspect]
     Indication: RAPID EYE MOVEMENTS SLEEP ABNORMAL
     Dosage: SEE IMAGE, ORAL
     Route: 048
     Dates: start: 20081101, end: 20090116
  4. XYREM [Suspect]
     Indication: RAPID EYE MOVEMENTS SLEEP ABNORMAL
     Dosage: SEE IMAGE, ORAL
     Route: 048
     Dates: start: 20090117
  5. DULOXETINE HYDROCHLORIDE [Suspect]
     Indication: DEPRESSION
     Dosage: 60 MG (60 MG, 1 IN 1 D); 120 MG (120 MG, 1 IN 1 D)
     Dates: start: 20040101, end: 20081101
  6. DULOXETINE HYDROCHLORIDE [Suspect]
     Indication: DEPRESSION
     Dosage: 60 MG (60 MG, 1 IN 1 D); 120 MG (120 MG, 1 IN 1 D)
     Dates: start: 20081101
  7. ALPRAZOLAM [Concomitant]
  8. FENTANYL (POULTICE OR PATCH) [Concomitant]
  9. HYDROMORPHONE HYDROCHLORIDE [Concomitant]
  10. ESTROGEN AND PROGESTIN (POULTICE OR PATCH) [Concomitant]
  11. LEVOTHYROXINE SODIUM [Concomitant]
  12. CLONIDINE HCL [Concomitant]
  13. DESLORATADINE [Concomitant]
  14. PANTOPRAZOLE [Concomitant]
  15. DARIFENACIN [Concomitant]
  16. IRBESARTAN [Concomitant]
  17. AMLODIPINE BESYLATE WITH ATORVASTATIN CALCIUM [Concomitant]
  18. PENTOSAN POLYSULFATE SODIUM [Concomitant]
  19. OMEGA-3 ACID ETHYL ESTERS [Concomitant]
  20. HYOSCYAMINE/METHENAMINE/METHYLENE BLUE/PHENYLSALICYLATE/SODIUM BIPHOSP [Concomitant]

REACTIONS (6)
  - ALOPECIA [None]
  - AMNESIA [None]
  - BREAST PAIN [None]
  - CONTUSION [None]
  - SEROTONIN SYNDROME [None]
  - TREMOR [None]
